FAERS Safety Report 17176494 (Version 4)
Quarter: 2022Q2

REPORT INFORMATION
  Report Type: Spontaneous
  Country: US (occurrence: US)
  Receive Date: 20191219
  Receipt Date: 20220406
  Transmission Date: 20220721
  Serious: Yes (Other)
  Sender: FDA-Public Use
  Company Number: None

PATIENT
  Age: 19 Year
  Sex: Male

DRUGS (1)
  1. KYMRIAH [Suspect]
     Active Substance: TISAGENLECLEUCEL
     Indication: Acute lymphocytic leukaemia recurrent
     Dosage: 1 DF, ONCE/SINGLE (.6E8 CAR- TCELLS) (0.6 UL)
     Route: 042
     Dates: start: 20190425, end: 20210728

REACTIONS (2)
  - Acute lymphocytic leukaemia recurrent [Not Recovered/Not Resolved]
  - Post-depletion B-cell recovery [Unknown]

NARRATIVE: CASE EVENT DATE: 20210701
